FAERS Safety Report 23097760 (Version 1)
Quarter: 2023Q4

REPORT INFORMATION
  Report Type: Spontaneous
  Country: CH (occurrence: CH)
  Receive Date: 20231023
  Receipt Date: 20231023
  Transmission Date: 20240110
  Serious: Yes (Hospitalization, Other)
  Sender: FDA-Public Use
  Company Number: None

PATIENT

DRUGS (2)
  1. LAMICTAL [Suspect]
     Active Substance: LAMOTRIGINE
     Indication: Idiopathic generalised epilepsy
     Dosage: UNK, 100 MG IN THE MORNING AND 150 MG IN THE
     Dates: start: 201901, end: 202303
  2. LAMICTAL [Suspect]
     Active Substance: LAMOTRIGINE
     Dosage: UNK, 100 MG IN THE MORNING AND 150 MG IN THE
     Dates: start: 20231004

REACTIONS (3)
  - Altered state of consciousness [Unknown]
  - Epilepsy [Unknown]
  - Anticonvulsant drug level above therapeutic [Unknown]

NARRATIVE: CASE EVENT DATE: 20231001
